FAERS Safety Report 6386386-X (Version None)
Quarter: 2009Q4

REPORT INFORMATION
  Report Type: 
  Country: None (occurrence: None)
  Receive Date: 20091002
  Receipt Date: 20090928
  Transmission Date: 20100525
  Serious: No
  Sender: FDA-Public Use
  Company Number: TR-AVENTIS-200920480GDDC

PATIENT
  Sex: Female

DRUGS (2)
  1. ARAVA [Suspect]
     Dosage: DOSE: UNK
  2. NO MENTION OF RELEVANT DISEASE [Concomitant]

REACTIONS (1)
  - DRUG EXPOSURE DURING PREGNANCY [None]
